FAERS Safety Report 14370182 (Version 1)
Quarter: 2018Q1

REPORT INFORMATION
  Report Type: Spontaneous
  Country: AT (occurrence: AT)
  Receive Date: 20180110
  Receipt Date: 20180110
  Transmission Date: 20180509
  Serious: Yes (Hospitalization, Other)
  Sender: FDA-Public Use
  Company Number: AT-CIPLA LTD.-2017AT31064

PATIENT

DRUGS (30)
  1. LYRICA [Concomitant]
     Active Substance: PREGABALIN
     Dosage: 50 MG, UNK
     Route: 048
     Dates: start: 20160525, end: 20160527
  2. LYRICA [Concomitant]
     Active Substance: PREGABALIN
     Dosage: 125 MG, UNK
     Route: 048
     Dates: start: 20160529, end: 20160601
  3. RISPERDAL [Concomitant]
     Active Substance: RISPERIDONE
     Dosage: 2 MG, UNK
     Route: 048
     Dates: start: 20160610, end: 20160619
  4. SEROQUEL [Concomitant]
     Active Substance: QUETIAPINE FUMARATE
     Dosage: 225 MG, UNK
     Route: 048
     Dates: start: 20160517, end: 20160518
  5. SEROQUEL [Concomitant]
     Active Substance: QUETIAPINE FUMARATE
     Dosage: 100 MG, UNK
     Route: 048
     Dates: start: 20160506, end: 20160509
  6. SEROQUEL [Concomitant]
     Active Substance: QUETIAPINE FUMARATE
     Dosage: 200 MG, UNK
     Route: 048
     Dates: start: 20160510, end: 20160516
  7. SERTRALINE [Suspect]
     Active Substance: SERTRALINE HYDROCHLORIDE
     Dosage: 200 MG, UNK
     Route: 048
     Dates: start: 20160609, end: 20160627
  8. ANTIBIOPHILUS [Concomitant]
     Dosage: 3 DF, DAILY
     Route: 065
     Dates: start: 20160611, end: 20160621
  9. SERTRALINE [Suspect]
     Active Substance: SERTRALINE HYDROCHLORIDE
     Dosage: 25 MG, UNK
     Route: 048
     Dates: start: 20160524, end: 20160525
  10. SERTRALINE [Suspect]
     Active Substance: SERTRALINE HYDROCHLORIDE
     Dosage: 150 MG, UNK
     Route: 048
     Dates: start: 20160608, end: 20160608
  11. PANTOLOC [Suspect]
     Active Substance: PANTOPRAZOLE SODIUM
     Dosage: 20 MG, UNK
     Route: 048
     Dates: start: 20160505, end: 20160510
  12. LYRICA [Concomitant]
     Active Substance: PREGABALIN
     Dosage: 300 MG, UNK
     Route: 048
     Dates: start: 20160610
  13. SEROQUEL [Concomitant]
     Active Substance: QUETIAPINE FUMARATE
     Dosage: 300 MG, UNK
     Route: 048
     Dates: start: 20160519, end: 20160602
  14. SEROQUEL [Concomitant]
     Active Substance: QUETIAPINE FUMARATE
     Dosage: 100 MG, UNK
     Route: 048
     Dates: start: 20160629
  15. MEPRIL [Concomitant]
     Dosage: 20 MG, UNK, SINCE A LONG TIME
     Route: 048
  16. LYRICA [Concomitant]
     Active Substance: PREGABALIN
     Dosage: 100 MG, UNK
     Route: 048
     Dates: start: 20160528, end: 20160528
  17. LYRICA [Concomitant]
     Active Substance: PREGABALIN
     Dosage: 150 MG, UNK
     Route: 048
     Dates: start: 20160602, end: 20160606
  18. LYRICA [Concomitant]
     Active Substance: PREGABALIN
     Dosage: 225 MG, UNK
     Route: 048
     Dates: start: 20160607, end: 20160609
  19. RISPERDAL [Concomitant]
     Active Substance: RISPERIDONE
     Dosage: 2 MG, UNK
     Route: 048
     Dates: start: 20160627, end: 20160627
  20. SEROQUEL [Concomitant]
     Active Substance: QUETIAPINE FUMARATE
     Dosage: 400 MG, UNK
     Route: 048
     Dates: start: 20160603, end: 20160608
  21. PANTOLOC [Suspect]
     Active Substance: PANTOPRAZOLE SODIUM
     Dosage: 40 MG, UNK
     Route: 048
     Dates: start: 20160511, end: 20160703
  22. OLEOVIT [Concomitant]
     Dosage: 28 GTT, UNK
     Route: 048
     Dates: start: 20160509
  23. METOHEXAL [Concomitant]
     Active Substance: METOPROLOL SUCCINATE
     Dosage: 47.5 MG, UNK, SINCE A LONG TIME
     Route: 048
  24. SERTRALINE [Suspect]
     Active Substance: SERTRALINE HYDROCHLORIDE
     Dosage: 100 MG, UNK
     Route: 048
     Dates: start: 20160530, end: 20160607
  25. RISPERDAL [Concomitant]
     Active Substance: RISPERIDONE
     Dosage: 1 MG, UNK
     Route: 048
     Dates: start: 20160609, end: 20160609
  26. RISPERDAL [Concomitant]
     Active Substance: RISPERIDONE
     Dosage: 1 MG, UNK
     Route: 048
     Dates: start: 20160629, end: 20160629
  27. RISPERDAL [Concomitant]
     Active Substance: RISPERIDONE
     Dosage: 2 MG, UNK
     Route: 048
     Dates: start: 20160630
  28. SEROQUEL [Concomitant]
     Active Substance: QUETIAPINE FUMARATE
     Dosage: 100 MG, UNK
     Route: 048
     Dates: start: 20160610, end: 20160627
  29. SERTRALINE [Suspect]
     Active Substance: SERTRALINE HYDROCHLORIDE
     Dosage: 50 MG, UNK
     Route: 048
     Dates: start: 20160526, end: 20160529
  30. SEROQUEL [Concomitant]
     Active Substance: QUETIAPINE FUMARATE
     Dosage: 200 MG, UNK
     Route: 048
     Dates: start: 20160609, end: 20160609

REACTIONS (1)
  - Colitis microscopic [Recovered/Resolved]

NARRATIVE: CASE EVENT DATE: 20160610
